FAERS Safety Report 8570897-2 (Version None)
Quarter: 2012Q3

REPORT INFORMATION
  Report Type: 
  Country: None (occurrence: None)
  Receive Date: 20120806
  Receipt Date: 20120726
  Transmission Date: 20120928
  Serious: Yes (Hospitalization)
  Sender: FDA-Public Use
  Company Number: ES-BIOGENIDEC-2012BI028529

PATIENT
  Sex: Female

DRUGS (1)
  1. AVONEX [Suspect]
     Indication: MULTIPLE SCLEROSIS

REACTIONS (4)
  - OEDEMA PERIPHERAL [None]
  - THROMBOTIC MICROANGIOPATHY [None]
  - HYPERTENSION [None]
  - MULTIPLE SCLEROSIS [None]
